FAERS Safety Report 13183211 (Version 1)
Quarter: 2017Q1

REPORT INFORMATION
  Report Type: Spontaneous
  Country: US (occurrence: US)
  Receive Date: 20170202
  Receipt Date: 20170202
  Transmission Date: 20170428
  Serious: Yes (Death)
  Sender: FDA-Public Use
  Company Number: None

PATIENT
  Age: 59 Year
  Sex: Male

DRUGS (1)
  1. SUTENT [Suspect]
     Active Substance: SUNITINIB MALATE
     Indication: LUNG NEOPLASM MALIGNANT
     Dosage: 25MG 2 DAYS ON, THEN 1 DAY OFF THEN PO
     Route: 048
     Dates: start: 20160112

REACTIONS (1)
  - Death [None]

NARRATIVE: CASE EVENT DATE: 20170128
